FAERS Safety Report 4345962-6 (Version None)
Quarter: 2004Q2

REPORT INFORMATION
  Report Type: 
  Country: None (occurrence: None)
  Receive Date: 20040420
  Receipt Date: 20040406
  Transmission Date: 20050107
  Serious: Yes (Hospitalization)
  Sender: FDA-Public Use
  Company Number: 2004-BP-02259YA

PATIENT
  Age: 72 Year
  Sex: Male

DRUGS (11)
  1. HARNAL (TAMSULOSIN) (NR) [Suspect]
     Indication: BENIGN PROSTATIC HYPERPLASIA
     Dosage: 0.1 + 0.2 MG/DAY PO
     Route: 048
     Dates: start: 20031009, end: 20031022
  2. HARNAL (TAMSULOSIN) (NR) [Suspect]
     Indication: BENIGN PROSTATIC HYPERPLASIA
     Dosage: 0.1 + 0.2 MG/DAY PO
     Route: 048
     Dates: start: 20031023, end: 20031125
  3. HARNAL (TAMSULOSIN) (NR) [Suspect]
     Indication: BENIGN PROSTATIC HYPERPLASIA
     Dosage: 0.1 + 0.2 MG/DAY PO
     Route: 048
     Dates: start: 20031126
  4. ALDACTONE [Suspect]
     Indication: HEPATIC CIRRHOSIS
     Dosage: 0.5 G (0.25 G BID) PO
     Route: 048
  5. ALDACTONE [Suspect]
     Indication: HEPATITIS C
     Dosage: 0.5 G (0.25 G BID) PO
     Route: 048
  6. URSODEXYCHOLIC ACID (NR) [Concomitant]
  7. KANAMYCIN SULFATE (NR) [Concomitant]
  8. ALLOPURINOL(NR) [Concomitant]
  9. GANATON (ITOPRIDE HYDROCHLORIDE) [Concomitant]
  10. MAGNESIUM OXIDE (NR) [Concomitant]
  11. CONTRAST MEDIUM (UNSPECIFIED) (NR) [Concomitant]

REACTIONS (11)
  - ALCOHOL POISONING [None]
  - BLOOD PRESSURE DECREASED [None]
  - CONDITION AGGRAVATED [None]
  - CONTUSION [None]
  - DEHYDRATION [None]
  - ELECTROCARDIOGRAM ST SEGMENT DEPRESSION [None]
  - FALL [None]
  - HEART RATE INCREASED [None]
  - HEPATITIS [None]
  - LOSS OF CONSCIOUSNESS [None]
  - OLIGURIA [None]
